FAERS Safety Report 15202348 (Version 1)
Quarter: 2018Q3

REPORT INFORMATION
  Report Type: Spontaneous
  Country: NL (occurrence: NL)
  Receive Date: 20180726
  Receipt Date: 20180726
  Transmission Date: 20181010
  Serious: Yes (Other)
  Sender: FDA-Public Use
  Company Number: PHHY2018NL053505

PATIENT
  Age: 57 Year
  Sex: Male

DRUGS (2)
  1. FOLIC ACID. [Concomitant]
     Active Substance: FOLIC ACID
     Indication: PSORIASIS
     Route: 065
  2. METHOTREXATE. [Suspect]
     Active Substance: METHOTREXATE
     Indication: PSORIASIS
     Dosage: 15 MG, QW (FOR SOME YEARS)
     Route: 065

REACTIONS (5)
  - Toxicity to various agents [Recovering/Resolving]
  - Dehydration [Unknown]
  - Pancytopenia [Recovering/Resolving]
  - Skin lesion [Recovering/Resolving]
  - Mouth ulceration [Unknown]
